FAERS Safety Report 10433755 (Version 10)
Quarter: 2016Q1

REPORT INFORMATION
  Report Type: Report from Study
  Country: US (occurrence: US)
  Receive Date: 20140905
  Receipt Date: 20160330
  Transmission Date: 20160525
  Serious: Yes (Hospitalization, Other)
  Sender: FDA-Public Use
  Company Number: US-SA-2013SA128251

PATIENT
  Age: 28 Year
  Sex: Female

DRUGS (5)
  1. AUBAGIO [Suspect]
     Active Substance: TERIFLUNOMIDE
     Indication: MULTIPLE SCLEROSIS
     Route: 048
     Dates: start: 20131126, end: 20150321
  2. AUBAGIO [Suspect]
     Active Substance: TERIFLUNOMIDE
     Indication: MULTIPLE SCLEROSIS
     Route: 048
     Dates: start: 20150407
  3. AUBAGIO [Suspect]
     Active Substance: TERIFLUNOMIDE
     Indication: MULTIPLE SCLEROSIS
     Route: 048
  4. AUBAGIO [Suspect]
     Active Substance: TERIFLUNOMIDE
     Indication: MULTIPLE SCLEROSIS
     Route: 048
     Dates: start: 201503, end: 20150328
  5. AUBAGIO [Suspect]
     Active Substance: TERIFLUNOMIDE
     Indication: MULTIPLE SCLEROSIS
     Route: 048
     Dates: start: 20131126, end: 20150321

REACTIONS (15)
  - Chest discomfort [Not Recovered/Not Resolved]
  - Hepatic steatosis [Not Recovered/Not Resolved]
  - Eye irritation [Unknown]
  - Nasopharyngitis [Not Recovered/Not Resolved]
  - Urine analysis abnormal [Unknown]
  - Blood triglycerides increased [Not Recovered/Not Resolved]
  - Cataract operation [Unknown]
  - Nasal operation [Not Recovered/Not Resolved]
  - Eye inflammation [Recovering/Resolving]
  - Lacrimation increased [Not Recovered/Not Resolved]
  - Nasal congestion [Not Recovered/Not Resolved]
  - Drug dose omission [Unknown]
  - Haemorrhage [Not Recovered/Not Resolved]
  - Dry eye [Unknown]
  - Alopecia [Recovered/Resolved]

NARRATIVE: CASE EVENT DATE: 20131220
